FAERS Safety Report 9597102 (Version 3)
Quarter: 2017Q1

REPORT INFORMATION
  Report Type: Report from Study
  Country: None (occurrence: US)
  Receive Date: 20131004
  Receipt Date: 20170313
  Transmission Date: 20170429
  Serious: Yes (Other)
  Sender: FDA-Public Use
  Company Number: US-ABBVIE-13P-163-1152699-00

PATIENT
  Sex: Female

DRUGS (1)
  1. CREON [Suspect]
     Active Substance: PANCRELIPASE AMYLASE\PANCRELIPASE LIPASE\PANCRELIPASE PROTEASE
     Indication: PANCREATIC INSUFFICIENCY
     Route: 065

REACTIONS (15)
  - Drug effect decreased [Unknown]
  - Product quality issue [Unknown]
  - Enzyme abnormality [Unknown]
  - Hypersomnia [Unknown]
  - Pulmonary resection [Unknown]
  - Gastrointestinal disorder [Unknown]
  - Nausea [Unknown]
  - Product physical issue [Unknown]
  - Alopecia [Unknown]
  - Hypophagia [Unknown]
  - Abnormal faeces [Unknown]
  - Steatorrhoea [Unknown]
  - Weight decreased [Unknown]
  - Cystic fibrosis [Unknown]
  - Malaise [Unknown]
